FAERS Safety Report 10575604 (Version 3)
Quarter: 2015Q1

REPORT INFORMATION
  Report Type: Spontaneous
  Country: US (occurrence: US)
  Receive Date: 20141111
  Receipt Date: 20150122
  Transmission Date: 20150720
  Serious: Yes (Hospitalization)
  Sender: FDA-Public Use
  Company Number: US-PFIZER INC-2014305109

PATIENT
  Age: 76 Year
  Sex: Male

DRUGS (1)
  1. SUTENT [Suspect]
     Active Substance: SUNITINIB MALATE
     Indication: METASTATIC RENAL CELL CARCINOMA
     Dosage: 50 MG, CYCLIC (28 DAYS ON, 14 DAYS OFF)
     Dates: start: 20140901

REACTIONS (8)
  - Fall [Recovered/Resolved]
  - Oral pain [Recovered/Resolved]
  - Malaise [Not Recovered/Not Resolved]
  - Asthenia [Recovered/Resolved]
  - Dry skin [Recovered/Resolved]
  - Palmar-plantar erythrodysaesthesia syndrome [Recovered/Resolved]
  - Fatigue [Recovered/Resolved]
  - Oral disorder [Recovered/Resolved]

NARRATIVE: CASE EVENT DATE: 2014
